FAERS Safety Report 7462436-4 (Version None)
Quarter: 2011Q2

REPORT INFORMATION
  Report Type: 
  Country: None (occurrence: None)
  Receive Date: 20110506
  Receipt Date: 20110428
  Transmission Date: 20111010
  Serious: Yes (Other)
  Sender: FDA-Public Use
  Company Number: FR-BRISTOL-MYERS SQUIBB COMPANY-15709629

PATIENT
  Age: 48 Year
  Sex: Male

DRUGS (4)
  1. NORVIR [Suspect]
     Indication: HIV INFECTION
     Route: 048
     Dates: start: 20090308
  2. VIREAD [Suspect]
     Indication: HIV INFECTION
     Dosage: 08SEP08-08MAR09,08MAR09-23NOV09
     Dates: start: 20080908
  3. REYATAZ [Suspect]
     Indication: HIV INFECTION
     Route: 048
     Dates: start: 20090308
  4. VIDEX [Suspect]
     Indication: HIV INFECTION
     Dates: start: 20020603, end: 20091123

REACTIONS (1)
  - RETINAL DEGENERATION [None]
